FAERS Safety Report 20879978 (Version 2)
Quarter: 2022Q2

REPORT INFORMATION
  Report Type: Spontaneous
  Country: US (occurrence: US)
  Receive Date: 20220526
  Receipt Date: 20220617
  Transmission Date: 20220721
  Serious: No
  Sender: FDA-Public Use
  Company Number: US-BRISTOL-MYERS SQUIBB COMPANY-2022-045759

PATIENT
  Age: 70 Year
  Sex: Female

DRUGS (1)
  1. REVLIMID [Suspect]
     Active Substance: LENALIDOMIDE
     Indication: Myelodysplastic syndrome
     Dosage: FREQUENCY: DAILY ON DAYS 1-21 OF A 28 DAY CYCLE.
     Route: 048

REACTIONS (6)
  - Nausea [Unknown]
  - Pruritus [Unknown]
  - Rash [Unknown]
  - Red blood cell count decreased [Unknown]
  - Haemoglobin [Unknown]
  - Urticaria [Unknown]
